FAERS Safety Report 6318208-7 (Version None)
Quarter: 2009Q3

REPORT INFORMATION
  Report Type: 
  Country: None (occurrence: None)
  Receive Date: 20090821
  Receipt Date: 20090817
  Transmission Date: 20100115
  Serious: Yes (Hospitalization)
  Sender: FDA-Public Use
  Company Number: B0589429A

PATIENT
  Sex: Female
  Weight: 88 kg

DRUGS (3)
  1. LAPATINIB [Suspect]
     Indication: BREAST CANCER
     Dosage: 1250MG PER DAY
     Route: 048
     Dates: start: 20090311
  2. DOCETAXEL [Suspect]
     Indication: BREAST CANCER
     Dosage: 140MG PER DAY
     Route: 042
     Dates: start: 20090603
  3. TAMOXIFEN CITRATE [Suspect]
     Indication: DRUG USE FOR UNKNOWN INDICATION
     Route: 065

REACTIONS (2)
  - ANAEMIA [None]
  - ASTHENIA [None]
